FAERS Safety Report 24033930 (Version 1)
Quarter: 2024Q3

REPORT INFORMATION
  Report Type: Spontaneous
  Country: GB (occurrence: GB)
  Receive Date: 20240701
  Receipt Date: 20240701
  Transmission Date: 20241017
  Serious: Yes (Hospitalization, Disabling)
  Sender: TEVA
  Company Number: GB-TEVA-VS-3214905

PATIENT

DRUGS (1)
  1. QUININE [Suspect]
     Active Substance: QUININE
     Indication: Product used for unknown indication
     Route: 048

REACTIONS (4)
  - Toxicity to various agents [Recovering/Resolving]
  - Amblyopia [Recovering/Resolving]
  - Blindness [Unknown]
  - Electrocardiogram abnormal [Recovering/Resolving]
